FAERS Safety Report 6242087-X (Version None)
Quarter: 2009Q2

REPORT INFORMATION
  Report Type: 
  Country: None (occurrence: None)
  Receive Date: 20090623
  Receipt Date: 20090623
  Transmission Date: 20091009
  Serious: Yes (Other)
  Sender: FDA-Public Use
  Company Number: US-PFIZER INC-2009213289

PATIENT
  Sex: Male

DRUGS (1)
  1. GEODON [Suspect]
     Dosage: FREQUENCY: 2X/DAY, EVERY DAY;
     Dates: end: 20090101

REACTIONS (4)
  - AGGRESSION [None]
  - LOSS OF CONSCIOUSNESS [None]
  - PSYCHOTIC DISORDER [None]
  - UNRESPONSIVE TO STIMULI [None]
